FAERS Safety Report 4932691-0 (Version None)
Quarter: 2006Q1

REPORT INFORMATION
  Report Type: 
  Country: None (occurrence: None)
  Receive Date: 20060301
  Receipt Date: 20060217
  Transmission Date: 20060701
  Serious: Yes (Hospitalization, Congenital Anomaly, Other)
  Sender: FDA-Public Use
  Company Number: 2006017361

PATIENT
  Age: 62 Year
  Sex: Female

DRUGS (3)
  1. AROMASIN [Suspect]
     Indication: BREAST CANCER RECURRENT
     Dosage: 25 MG (25 MG, 1 IN 1 D), ORAL
     Route: 048
     Dates: start: 20060115, end: 20060120
  2. NORVASC [Concomitant]
  3. PRAVASTATIN [Concomitant]

REACTIONS (9)
  - ABASIA [None]
  - ARTHRALGIA [None]
  - BUTTOCK PAIN [None]
  - CONDITION AGGRAVATED [None]
  - DYSSTASIA [None]
  - HYPOAESTHESIA [None]
  - METASTASES TO MENINGES [None]
  - MUSCULAR WEAKNESS [None]
  - PERONEAL NERVE PALSY [None]
